FAERS Safety Report 8640742 (Version 3)
Quarter: 2012Q4

REPORT INFORMATION
  Report Type: Report from Study
  Country: US (occurrence: US)
  Receive Date: 20120628
  Receipt Date: 20121025
  Transmission Date: 20130627
  Serious: Yes (Hospitalization)
  Sender: FDA-Public Use
  Company Number: US-JNJFOC-20120610126

PATIENT
  Age: 16 Year
  Sex: Female
  Weight: 39.4 kg

DRUGS (3)
  1. REMICADE [Suspect]
     Indication: CROHN^S DISEASE
     Route: 042
     Dates: end: 20100106
  2. 5-ASA [Concomitant]
     Route: 048
  3. HUMIRA [Concomitant]
     Dates: start: 20100129

REACTIONS (1)
  - Failure to thrive [Recovered/Resolved]
